FAERS Safety Report 23326252 (Version 1)
Quarter: 2023Q4

REPORT INFORMATION
  Report Type: Spontaneous
  Country: US (occurrence: US)
  Receive Date: 20231221
  Receipt Date: 20231221
  Transmission Date: 20240109
  Serious: No
  Sender: FDA-Public Use
  Company Number: US-ABBVIE-5548308

PATIENT
  Sex: Female

DRUGS (1)
  1. UBRELVY [Suspect]
     Active Substance: UBROGEPANT
     Indication: Migraine
     Route: 048
     Dates: start: 20231213

REACTIONS (5)
  - Malaise [Unknown]
  - Nausea [Not Recovered/Not Resolved]
  - Aura [Unknown]
  - Drug ineffective [Unknown]
  - Visual impairment [Unknown]

NARRATIVE: CASE EVENT DATE: 20231201
